FAERS Safety Report 8499381-1 (Version None)
Quarter: 2012Q2

REPORT INFORMATION
  Report Type: 
  Country: None (occurrence: None)
  Receive Date: 20120614
  Receipt Date: 20120604
  Transmission Date: 20120825
  Serious: Yes (Hospitalization, Other)
  Sender: FDA-Public Use
  Company Number: 2012PROUSA01442

PATIENT
  Age: 75 Year
  Sex: Male
  Weight: 103.9 kg

DRUGS (9)
  1. SERTRALINE HYDROCHLORIDE [Concomitant]
  2. PROVENGE [Suspect]
     Indication: PROSTATE CANCER METASTATIC
     Dosage: 250 ML, SINGLE, INTRAVENOUS
     Route: 042
     Dates: start: 20120420, end: 20120420
  3. CALCIUM + VITAMIN D /01483701/ (CALCIUM, COLECALCIFEROL) [Concomitant]
  4. LEUPROLIDE (LEUPROLIDE) [Concomitant]
  5. LISINOPRIL AND HYDROCHLOROTHIAZIDE [Concomitant]
  6. FERROUS SULFATE TAB [Concomitant]
  7. PROVENGE [Suspect]
     Dosage: 250 MGL, SINGLE, INTRAVENOUS
     Route: 042
     Dates: start: 20120504, end: 20120504
  8. BICALUTAMIDE [Concomitant]
  9. NEXIUM [Concomitant]

REACTIONS (2)
  - ANAEMIA [None]
  - COLON CANCER [None]
